FAERS Safety Report 4485204-4 (Version None)
Quarter: 2004Q4

REPORT INFORMATION
  Report Type: 
  Country: None (occurrence: None)
  Receive Date: 20041026
  Receipt Date: 20040506
  Transmission Date: 20050328
  Serious: No
  Sender: FDA-Public Use
  Company Number: US-BRISTOL-MYERS SQUIBB COMPANY-12580932

PATIENT
  Age: 62 Year
  Sex: Female
  Weight: 103 kg

DRUGS (4)
  1. GLUCOPHAGE XR [Suspect]
     Indication: DIABETES MELLITUS
     Dosage: DURATION OF THERAPY:  ^SEVERAL YEARS^
     Route: 048
  2. ACTOSE [Concomitant]
     Dosage: DURATION OF THERAPY:  ^SEVERAL YEARS^
  3. ALTACE [Concomitant]
     Dosage: DURATION OF THERAPY:  ^SEVERAL YEARS^
  4. PRILOSEC [Concomitant]
     Dosage: DURATION OF THERAPY:  ^SEVERAL YEARS^

REACTIONS (1)
  - INTESTINAL POLYP [None]
